FAERS Safety Report 8111365-1 (Version None)
Quarter: 2012Q1

REPORT INFORMATION
  Report Type: 
  Country: None (occurrence: None)
  Receive Date: 20120203
  Receipt Date: 20111010
  Transmission Date: 20120608
  Serious: No
  Sender: FDA-Public Use
  Company Number: US-GLAXOSMITHKLINE-A0948475A

PATIENT
  Age: 52 Year
  Sex: Female

DRUGS (3)
  1. ALLEGRA [Concomitant]
  2. LAMOTRIGINE [Suspect]
     Indication: BIPOLAR DISORDER
     Dosage: 200MG AT NIGHT
     Route: 048
     Dates: start: 20060101, end: 20111008
  3. VERAPAMIL [Concomitant]

REACTIONS (7)
  - RASH [None]
  - ERYTHEMA [None]
  - DRUG INEFFECTIVE [None]
  - URTICARIA [None]
  - SKIN ULCER [None]
  - SWELLING [None]
  - PRURITUS [None]
